FAERS Safety Report 8591785-1 (Version None)
Quarter: 2012Q3

REPORT INFORMATION
  Report Type: 
  Country: None (occurrence: None)
  Receive Date: 20120814
  Receipt Date: 20120807
  Transmission Date: 20120928
  Serious: Yes (Other)
  Sender: FDA-Public Use
  Company Number: PHHY2012FR066697

PATIENT
  Sex: Female

DRUGS (5)
  1. ACETAMINOPHEN [Concomitant]
  2. ZOMETA [Suspect]
     Dosage: 4 MG, / 100ML
     Route: 042
     Dates: start: 20120707
  3. ESOMEPRAZOLE [Concomitant]
     Dosage: 1 DF, UNK
     Route: 048
     Dates: start: 20111215, end: 20120731
  4. ZOMETA [Suspect]
     Dosage: 4 MG/5 ML, EVERY 4 WEEKS
     Route: 042
     Dates: start: 20101007, end: 20120503
  5. ZOMETA [Suspect]
     Dosage: 4 MG/100ML
     Route: 042
     Dates: start: 20120606, end: 20120621

REACTIONS (12)
  - INFLAMMATION [None]
  - BONE PAIN [None]
  - LYMPHADENOPATHY [None]
  - OEDEMA PERIPHERAL [None]
  - INFLUENZA LIKE ILLNESS [None]
  - VARICOSE VEIN [None]
  - ERYTHEMA [None]
  - GAIT DISTURBANCE [None]
  - ARTHRALGIA [None]
  - NAUSEA [None]
  - MUSCULOSKELETAL CHEST PAIN [None]
  - GROIN PAIN [None]
